FAERS Safety Report 7540910-X (Version None)
Quarter: 2011Q2

REPORT INFORMATION
  Report Type: 
  Country: None (occurrence: None)
  Receive Date: 20110610
  Receipt Date: 20110608
  Transmission Date: 20111010
  Serious: Yes (Other)
  Sender: FDA-Public Use
  Company Number: US-AMGEN-USASP2010009681

PATIENT
  Age: 75 Year
  Sex: Male

DRUGS (8)
  1. AMICAR [Concomitant]
  2. VICODIN [Concomitant]
  3. PAXIL [Concomitant]
  4. METOPROLOL [Concomitant]
  5. ALLOPURINOL [Concomitant]
  6. NPLATE [Suspect]
     Indication: IDIOPATHIC THROMBOCYTOPENIC PURPURA
     Dosage: 1 A?G/KG, UNK
     Dates: start: 20090527, end: 20101006
  7. DANAZOL [Concomitant]
     Indication: IDIOPATHIC THROMBOCYTOPENIC PURPURA
     Dosage: UNK
  8. PREDNISONE [Concomitant]

REACTIONS (2)
  - DRUG INEFFECTIVE [None]
  - DEEP VEIN THROMBOSIS [None]
